FAERS Safety Report 11610462 (Version 1)
Quarter: 2015Q4

REPORT INFORMATION
  Report Type: Spontaneous
  Country: DE (occurrence: DE)
  Receive Date: 20151008
  Receipt Date: 20151008
  Transmission Date: 20160304
  Serious: Yes (Disabling, Other)
  Sender: FDA-Public Use
  Company Number: DE-DRREDDYS-GER/GER/15/0053012

PATIENT
  Age: 81 Year
  Sex: Female

DRUGS (2)
  1. MEMANTINHYDROCHLORID BETA STARTPACKUNG 5MG/10MG/15MG/20MG FILMTABLETTE [Suspect]
     Active Substance: MEMANTINE HYDROCHLORIDE
     Indication: DEMENTIA ALZHEIMER^S TYPE
     Dosage: SLOWLY INCREASING DOSE (5-10-15-20 MG) IN THE EVENINGS
     Route: 048
     Dates: start: 20150828
  2. DONEPEZIL HCL 1A PHARMA 10 MG [Interacting]
     Active Substance: DONEPEZIL HYDROCHLORIDE
     Indication: DEMENTIA ALZHEIMER^S TYPE
     Dates: start: 20150828, end: 20150918

REACTIONS (5)
  - Apathy [Recovering/Resolving]
  - Confusional state [Recovering/Resolving]
  - Drug interaction [Unknown]
  - Tremor [Recovering/Resolving]
  - Paraesthesia [Recovering/Resolving]

NARRATIVE: CASE EVENT DATE: 201509
